FAERS Safety Report 19742895 (Version 2)
Quarter: 2021Q4

REPORT INFORMATION
  Report Type: Spontaneous
  Country: US (occurrence: US)
  Receive Date: 20210824
  Receipt Date: 20211020
  Transmission Date: 20220304
  Serious: No
  Sender: FDA-Public Use
  Company Number: US-VERTEX PHARMACEUTICALS-2021-002036

PATIENT
  Sex: Female

DRUGS (10)
  1. TRIKAFTA [Suspect]
     Active Substance: ELEXACAFTOR\IVACAFTOR\TEZACAFTOR
     Indication: Cystic fibrosis
     Dosage: 2 TABLETS (100 MG ELEXA/ 50 MG TEZA/ 75 MG IVA) AM; 1 TABLET (150MG IVA) PM
     Route: 048
     Dates: start: 20210118
  2. TRIKAFTA [Suspect]
     Active Substance: ELEXACAFTOR\IVACAFTOR\TEZACAFTOR
     Dosage: CUT DOSE IN HALF
     Route: 048
     Dates: start: 2021, end: 2021
  3. TRIKAFTA [Suspect]
     Active Substance: ELEXACAFTOR\IVACAFTOR\TEZACAFTOR
     Dosage: 2 TABLETS (100 MG ELEXA/ 50 MG TEZA/ 75 MG IVA) AM; 1 TABLET (150MG IVA) PM
     Route: 048
     Dates: start: 2021
  4. ALBUTEROL [Concomitant]
     Active Substance: ALBUTEROL
  5. ALVESCO [Concomitant]
     Active Substance: CICLESONIDE
  6. LEVOTHYROXINE [Concomitant]
     Active Substance: LEVOTHYROXINE
  7. SODIUM CHLORIDE [Concomitant]
     Active Substance: SODIUM CHLORIDE
     Route: 055
  8. ZYRTEC [Concomitant]
     Active Substance: CETIRIZINE HYDROCHLORIDE
  9. NEOMYCIN AND POLYMYXIN B SULFATES AND HYDROCORTISONE [Concomitant]
     Active Substance: HYDROCORTISONE\NEOMYCIN SULFATE\POLYMYXIN B SULFATE
  10. XOLAIR [Concomitant]
     Active Substance: OMALIZUMAB

REACTIONS (11)
  - Fatigue [Not Recovered/Not Resolved]
  - Alopecia [Not Recovered/Not Resolved]
  - Asthenia [Recovering/Resolving]
  - Dizziness [Recovered/Resolved]
  - Breast pain [Not Recovered/Not Resolved]
  - Sputum discoloured [Not Recovered/Not Resolved]
  - Skin odour abnormal [Not Recovered/Not Resolved]
  - Medical procedure [Unknown]
  - Haemoptysis [Not Recovered/Not Resolved]
  - Liver function test increased [Recovering/Resolving]
  - Abdominal discomfort [Not Recovered/Not Resolved]

NARRATIVE: CASE EVENT DATE: 20210101
